FAERS Safety Report 4708804-2 (Version None)
Quarter: 2005Q3

REPORT INFORMATION
  Report Type: 
  Country: None (occurrence: None)
  Receive Date: 20050705
  Receipt Date: 20050620
  Transmission Date: 20060218
  Serious: Yes (Disabling)
  Sender: FDA-Public Use
  Company Number: S05-DEN-02282-01

PATIENT
  Age: 56 Year

DRUGS (3)
  1. CIPRALEX                        (ESCITALOPRAM) [Suspect]
     Indication: DEPRESSION
     Dosage: 10 MG QD PO
     Route: 048
     Dates: start: 20050301, end: 20050401
  2. ALOPAM                   (OXAZEPAM) [Concomitant]
  3. STILNOCT                       (ZOLPIDEM TARTRATE) [Concomitant]

REACTIONS (10)
  - ANXIETY [None]
  - BURNING SENSATION [None]
  - CONDITION AGGRAVATED [None]
  - EYE PAIN [None]
  - EYELID DISORDER [None]
  - MUSCULOSKELETAL STIFFNESS [None]
  - MYOPIA [None]
  - PAIN [None]
  - SENSORY DISTURBANCE [None]
  - VISION BLURRED [None]
